FAERS Safety Report 13704545 (Version 1)
Quarter: 2017Q2

REPORT INFORMATION
  Report Type: Report from Study
  Country: None (occurrence: CA)
  Receive Date: 20170630
  Receipt Date: 20170630
  Transmission Date: 20170830
  Serious: Yes (Other)
  Sender: FDA-Public Use
  Company Number: CA-ABBVIE-17K-028-2021517-00

PATIENT
  Sex: Female

DRUGS (1)
  1. HUMIRA [Suspect]
     Active Substance: ADALIMUMAB
     Indication: CROHN^S DISEASE
     Route: 058
     Dates: start: 20130221

REACTIONS (7)
  - Pruritus [Not Recovered/Not Resolved]
  - Stomal hernia [Unknown]
  - Abdominal adhesions [Unknown]
  - Gastrointestinal stoma complication [Recovering/Resolving]
  - Crohn^s disease [Recovering/Resolving]
  - Weight decreased [Not Recovered/Not Resolved]
  - Intestinal stenosis [Recovering/Resolving]

NARRATIVE: CASE EVENT DATE: 2017
